FAERS Safety Report 20691587 (Version 2)
Quarter: 2022Q2

REPORT INFORMATION
  Report Type: Spontaneous
  Country: US (occurrence: US)
  Receive Date: 20220408
  Receipt Date: 20220504
  Transmission Date: 20220721
  Serious: Yes (Disabling)
  Sender: FDA-Public Use
  Company Number: US-AMERICAN REGENT INC-2022000948

PATIENT
  Age: 38 Year
  Sex: Female
  Weight: 98.413 kg

DRUGS (4)
  1. INJECTAFER [Suspect]
     Active Substance: FERRIC CARBOXYMALTOSE
     Indication: Iron deficiency
     Dosage: 750 MILLIGRAM, SINGLE
     Route: 042
     Dates: start: 20220211, end: 20220211
  2. INJECTAFER [Suspect]
     Active Substance: FERRIC CARBOXYMALTOSE
     Dosage: 750 MILLIGRAM, SINGLE
     Route: 042
     Dates: start: 20220218, end: 20220218
  3. SOLU-MEDROL [Concomitant]
     Active Substance: METHYLPREDNISOLONE SODIUM SUCCINATE
     Indication: Premedication
     Dosage: 62.5 MILLIGRAM, SINGLE (30 MINUTES PRIOR TO INFUSION)
     Route: 065
     Dates: start: 20220218, end: 20220218
  4. ZYRTEC [Concomitant]
     Active Substance: CETIRIZINE HYDROCHLORIDE
     Indication: Premedication
     Dosage: UNK, 2 DAYS PRIOR AND 1 WEEK AFTER INFUSION
     Route: 065
     Dates: start: 20220216, end: 202202

REACTIONS (13)
  - Pain [Recovered/Resolved]
  - Fatigue [Recovered/Resolved]
  - Blood phosphorus decreased [Recovered/Resolved]
  - Chest pain [Recovering/Resolving]
  - Pyrexia [Recovered/Resolved]
  - Nausea [Recovered/Resolved]
  - Dizziness [Recovered/Resolved]
  - Chills [Recovered/Resolved]
  - Flushing [Recovered/Resolved]
  - Arthralgia [Recovered/Resolved]
  - Back pain [Recovered/Resolved]
  - Dyspnoea [Recovered/Resolved]
  - Tachycardia [Recovered/Resolved]

NARRATIVE: CASE EVENT DATE: 20220212
